FAERS Safety Report 4446937-9 (Version None)
Quarter: 2004Q3

REPORT INFORMATION
  Report Type: 
  Country: None (occurrence: None)
  Receive Date: 20040908
  Receipt Date: 20040824
  Transmission Date: 20050211
  Serious: Yes (Other)
  Sender: FDA-Public Use
  Company Number: 2004-UK-00830UK

PATIENT
  Age: 52 Year
  Sex: Female

DRUGS (5)
  1. SPIRIVA [Suspect]
     Indication: CHRONIC OBSTRUCTIVE AIRWAYS DISEASE
     Dosage: 18 MCG (18 MCG)  IH
     Route: 055
     Dates: start: 20040802, end: 20040818
  2. OXITROPIUM (OXITROPIUM) [Concomitant]
  3. LAMOTRIGINE [Concomitant]
  4. PROCYCLIDINE HYDROCHLORIDE 2MG TAB [Concomitant]
  5. CITALOPRAM [Concomitant]

REACTIONS (2)
  - FACE OEDEMA [None]
  - RASH [None]
